FAERS Safety Report 26016067 (Version 1)
Quarter: 2025Q4

REPORT INFORMATION
  Report Type: Spontaneous
  Country: US (occurrence: US)
  Receive Date: 20251110
  Receipt Date: 20251110
  Transmission Date: 20260117
  Serious: Yes (Other)
  Sender: ABBVIE
  Company Number: US-ABBVIE-6534705

PATIENT
  Sex: Female

DRUGS (2)
  1. REFRESH RELIEVA PF [Suspect]
     Active Substance: CARBOXYMETHYLCELLULOSE SODIUM\GLYCERIN
     Indication: Adjuvant therapy
     Dosage: OPHTHALMIC
     Route: 065
  2. REFRESH TEARS [Suspect]
     Active Substance: CARBOXYMETHYLCELLULOSE SODIUM
     Indication: Product used for unknown indication
     Dosage: OPHTHALMIC
     Route: 065

REACTIONS (3)
  - Ovarian cancer stage IV [Unknown]
  - Off label use [Unknown]
  - Product container issue [Unknown]
